FAERS Safety Report 19068915 (Version 2)
Quarter: 2021Q2

REPORT INFORMATION
  Report Type: Report from Study
  Country: US (occurrence: US)
  Receive Date: 20210329
  Receipt Date: 20210405
  Transmission Date: 20210717
  Serious: Yes (Hospitalization, Other)
  Sender: FDA-Public Use
  Company Number: US-BAYER-2021-108951

PATIENT
  Age: 20 Year
  Sex: Male

DRUGS (3)
  1. STIVARGA [Suspect]
     Active Substance: REGORAFENIB
     Indication: EWING^S SARCOMA
     Dosage: 40 MG DAILY
     Route: 048
     Dates: start: 20210324
  2. OXYGEN. [Concomitant]
     Active Substance: OXYGEN
     Dosage: UNK
  3. STIVARGA [Suspect]
     Active Substance: REGORAFENIB
     Indication: BONE CANCER
     Dosage: 160 MG DAILY FOR 21 DAYS ON THE 7 DAYS OFF
     Route: 048
     Dates: start: 20210311, end: 20210316

REACTIONS (6)
  - Diarrhoea [Recovering/Resolving]
  - Terminal state [Recovering/Resolving]
  - Dyspnoea [Recovering/Resolving]
  - Product use in unapproved indication [None]
  - Pre-existing condition improved [None]
  - Off label use [None]

NARRATIVE: CASE EVENT DATE: 202103
